FAERS Safety Report 7301047-8 (Version None)
Quarter: 2010Q4

REPORT INFORMATION
  Report Type: 
  Country: None (occurrence: None)
  Receive Date: 20101229
  Receipt Date: 20101014
  Transmission Date: 20110411
  Serious: No
  Sender: FDA-Public Use
  Company Number: 1000016820

PATIENT
  Sex: Female

DRUGS (2)
  1. BYSTOLIC [Suspect]
  2. LISINOPRIL [Suspect]

REACTIONS (1)
  - RASH [None]
